FAERS Safety Report 20437114 (Version 4)
Quarter: 2022Q3

REPORT INFORMATION
  Report Type: Spontaneous
  Country: JP (occurrence: JP)
  Receive Date: 20220207
  Receipt Date: 20220809
  Transmission Date: 20221027
  Serious: No
  Sender: FDA-Public Use
  Company Number: JP-GLAXOSMITHKLINE-JP2022JPN017334

PATIENT

DRUGS (18)
  1. SOTROVIMAB [Suspect]
     Active Substance: SOTROVIMAB
     Indication: COVID-19
     Dosage: 500 MG/DAY
     Route: 042
     Dates: start: 20220128, end: 20220128
  2. PIPERIDOLATE HYDROCHLORIDE [Suspect]
     Active Substance: PIPERIDOLATE HYDROCHLORIDE
     Indication: Premature labour
     Dosage: 150 MG/DAY
     Route: 048
  3. BRICANYL [Suspect]
     Active Substance: TERBUTALINE SULFATE
     Indication: Premature labour
     Dosage: 0.2 MG/DAY
     Route: 058
     Dates: start: 20220202
  4. BRICANYL [Suspect]
     Active Substance: TERBUTALINE SULFATE
     Dosage: 0.2 MG
     Route: 058
     Dates: start: 20220322
  5. BRICANYL [Suspect]
     Active Substance: TERBUTALINE SULFATE
     Dosage: 0.2 MG
     Route: 058
     Dates: start: 20220328
  6. BRICANYL [Suspect]
     Active Substance: TERBUTALINE SULFATE
     Dosage: 0.2 MG
     Route: 058
     Dates: start: 20220420
  7. DEXTROSE\MAGNESIUM SULFATE HEPTAHYDRATE [Suspect]
     Active Substance: DEXTROSE\MAGNESIUM SULFATE HEPTAHYDRATE
     Indication: Premature labour
     Dosage: 300 MG/DAY
     Route: 042
     Dates: start: 20220315, end: 20220328
  8. RITODRINE HYDROCHLORIDE [Suspect]
     Active Substance: RITODRINE HYDROCHLORIDE
     Indication: Premature labour
     Dosage: 15 MG/DAY
     Route: 048
     Dates: start: 20220127, end: 20220212
  9. RITODRINE HYDROCHLORIDE [Suspect]
     Active Substance: RITODRINE HYDROCHLORIDE
     Dosage: 15 MG
     Route: 048
     Dates: start: 20220222, end: 20220315
  10. RITODRINE HYDROCHLORIDE [Suspect]
     Active Substance: RITODRINE HYDROCHLORIDE
     Dosage: 15 MG
     Route: 048
     Dates: start: 20220329, end: 20220331
  11. HERBALS [Suspect]
     Active Substance: HERBALS
     Indication: Premature labour
     Dosage: 6 G/DAY
     Route: 048
     Dates: start: 20220127, end: 20220212
  12. DIMEMORFAN PHOSPHATE [Suspect]
     Active Substance: DIMEMORFAN PHOSPHATE
     Indication: Cough
     Dosage: 20 MG/DAY
     Route: 048
     Dates: start: 20220127, end: 20220131
  13. DIMEMORFAN PHOSPHATE [Suspect]
     Active Substance: DIMEMORFAN PHOSPHATE
     Dosage: 20 MG
     Route: 048
     Dates: start: 20220320, end: 20220328
  14. DEXTROMETHORPHAN HYDROBROMIDE [Suspect]
     Active Substance: DEXTROMETHORPHAN HYDROBROMIDE
     Indication: Cough
     Dosage: 45 MG/DAY
     Route: 048
     Dates: start: 20220128, end: 20220131
  15. MAGNESIUM OXIDE [Suspect]
     Active Substance: MAGNESIUM OXIDE
     Indication: Constipation
     Dosage: 990 MG/DAY
     Route: 048
     Dates: start: 20220127, end: 20220205
  16. MAGNESIUM OXIDE [Suspect]
     Active Substance: MAGNESIUM OXIDE
     Dosage: 990 MG
     Route: 048
     Dates: start: 20220322, end: 20220403
  17. REBAMIPIDE [Suspect]
     Active Substance: REBAMIPIDE
     Indication: Abdominal discomfort
     Dosage: 300 MG/DAY
     Route: 048
     Dates: start: 20220325, end: 20220328
  18. PULMICORT TURBUHALER [Suspect]
     Active Substance: BUDESONIDE
     Indication: Asthma
     Dosage: 400 ?G/DAY
     Route: 055
     Dates: start: 20220309

REACTIONS (1)
  - Exposure during pregnancy [Unknown]
